FAERS Safety Report 9200125 (Version 1)
Quarter: 2013Q1

REPORT INFORMATION
  Report Type: Spontaneous
  Country: US (occurrence: US)
  Receive Date: 20130329
  Receipt Date: 20130329
  Transmission Date: 20140127
  Serious: Yes (Other)
  Sender: FDA-Public Use
  Company Number: US-SANOFI-AVENTIS-2013SA024284

PATIENT
  Age: 58 Year
  Sex: Female

DRUGS (1)
  1. AUBAGIO [Suspect]
     Indication: MULTIPLE SCLEROSIS
     Route: 048
     Dates: start: 20130220, end: 20130320

REACTIONS (7)
  - Multiple sclerosis [Unknown]
  - Tremor [Unknown]
  - Dyskinesia [Unknown]
  - Muscle spasms [Unknown]
  - Balance disorder [Unknown]
  - Vomiting [Unknown]
  - Nausea [Unknown]
